FAERS Safety Report 7480013-6 (Version None)
Quarter: 2011Q2

REPORT INFORMATION
  Report Type: 
  Country: None (occurrence: None)
  Receive Date: 20110516
  Receipt Date: 20110505
  Transmission Date: 20111010
  Serious: Yes (Hospitalization)
  Sender: FDA-Public Use
  Company Number: US-BIOGENIDEC-2009BI023941

PATIENT
  Age: 57 Year
  Sex: Female

DRUGS (3)
  1. VITAMIN B-12 [Concomitant]
     Indication: PERNICIOUS ANAEMIA
  2. TYSABRI [Suspect]
     Indication: MULTIPLE SCLEROSIS
     Route: 042
     Dates: start: 20080421
  3. IRON TABLET [Concomitant]
     Indication: PERNICIOUS ANAEMIA

REACTIONS (2)
  - PNEUMONIA [None]
  - ORAL HERPES [None]
